FAERS Safety Report 9275645 (Version 2)
Quarter: 2013Q2

REPORT INFORMATION
  Report Type: Spontaneous
  Country: IT (occurrence: None)
  Receive Date: 20130315
  Receipt Date: 20130503
  Transmission Date: 20140414
  Serious: Yes (Hospitalization, Other)
  Sender: FDA-Public Use
  Company Number: ADR-2013-00436

PATIENT
  Sex: 0

DRUGS (1)
  1. LIORESAL INTRATHECAL (BACLOFEN INJECTION) [Suspect]

REACTIONS (5)
  - Syringomyelia [None]
  - Medical device complication [None]
  - Injury [None]
  - No therapeutic response [None]
  - Arachnoiditis [None]
